FAERS Safety Report 7689689-1 (Version None)
Quarter: 2011Q3

REPORT INFORMATION
  Report Type: 
  Country: None (occurrence: None)
  Receive Date: 20110817
  Receipt Date: 20110808
  Transmission Date: 20111222
  Serious: Yes (Other)
  Sender: FDA-Public Use
  Company Number: US-ASTRAZENECA-2011SE40566

PATIENT
  Age: 54 Year
  Sex: Male

DRUGS (4)
  1. NEXIUM [Suspect]
     Route: 048
  2. TOPROL-XL [Concomitant]
  3. ACCOLATE [Concomitant]
  4. PLENDIL [Concomitant]

REACTIONS (5)
  - GASTRIC DISORDER [None]
  - GASTRIC ULCER HAEMORRHAGE [None]
  - CARDIAC PACEMAKER INSERTION [None]
  - DRUG DOSE OMISSION [None]
  - CARDIAC DISORDER [None]
